FAERS Safety Report 6406712-2 (Version None)
Quarter: 2009Q4

REPORT INFORMATION
  Report Type: 
  Country: None (occurrence: None)
  Receive Date: 20091020
  Receipt Date: 20091012
  Transmission Date: 20100525
  Serious: Yes (Hospitalization)
  Sender: FDA-Public Use
  Company Number: US-ELI_LILLY_AND_COMPANY-US200908006141

PATIENT
  Sex: Female
  Weight: 88.435 kg

DRUGS (10)
  1. BYETTA [Suspect]
     Indication: TYPE 2 DIABETES MELLITUS
     Dosage: 5 UG, 2/D
     Dates: start: 20051209, end: 20060116
  2. BYETTA [Suspect]
     Dosage: 10 UG, 2/D
     Dates: start: 20060116
  3. GLUCOPHAGE XR [Concomitant]
     Dosage: 2000 MG, DAILY (1/D)
     Route: 048
     Dates: start: 20030320, end: 20090801
  4. GLUCOPHAGE XR [Concomitant]
     Dosage: 2500 MG, DAILY (1/D)
     Route: 048
     Dates: start: 20090801
  5. JANUVIA [Concomitant]
     Indication: TYPE 2 DIABETES MELLITUS
     Dosage: 50 MG, DAILY (1/D)
     Route: 048
     Dates: start: 20090303
  6. COZAAR [Concomitant]
     Indication: RENAL DISORDER
     Dosage: 50 MG, DAILY (1/D)
     Route: 048
     Dates: start: 20051209, end: 20090801
  7. COZAAR [Concomitant]
     Dosage: 25 MG, DAILY (1/D)
     Route: 048
     Dates: start: 20090801
  8. ZOLOFT [Concomitant]
     Dosage: 100 MG, DAILY (1/D)
     Route: 048
     Dates: start: 20030421
  9. AMBIEN [Concomitant]
     Dates: start: 20040813
  10. SIMVASTATIN [Concomitant]
     Dosage: 80 MG, DAILY (1/D)
     Route: 048

REACTIONS (4)
  - HOT FLUSH [None]
  - HYPOTENSION [None]
  - LEFT VENTRICULAR DYSFUNCTION [None]
  - MYOCARDIAL INFARCTION [None]
